FAERS Safety Report 5642789-X (Version None)
Quarter: 2008Q1

REPORT INFORMATION
  Report Type: 
  Country: None (occurrence: None)
  Receive Date: 20080228
  Receipt Date: 20080218
  Transmission Date: 20080703
  Serious: Yes (Hospitalization)
  Sender: FDA-Public Use
  Company Number: JP-AMGEN-US266950

PATIENT
  Age: 67 Year
  Sex: Female

DRUGS (13)
  1. ENBREL [Suspect]
     Indication: RHEUMATOID ARTHRITIS
     Dosage: UNKNOWN
     Route: 058
     Dates: end: 20071102
  2. RHEUMATREX [Suspect]
     Indication: RHEUMATOID ARTHRITIS
     Dosage: UNKNOWN
  3. BONALON [Concomitant]
     Dosage: 5 MG
  4. FOLIAMIN [Concomitant]
  5. ISCOTIN [Concomitant]
  6. JUVELA [Concomitant]
  7. ZOLPIDEM TARTRATE [Concomitant]
  8. DUVADILAN [Concomitant]
  9. COLICOOL [Concomitant]
  10. ALFAROL [Concomitant]
  11. CELECOXIB [Concomitant]
  12. ISALON [Concomitant]
  13. CYANOCOBALAMIN [Concomitant]

REACTIONS (2)
  - FEMORAL NECK FRACTURE [None]
  - INJECTION SITE PAIN [None]
